FAERS Safety Report 9892062 (Version 1)
Quarter: 2014Q1

REPORT INFORMATION
  Report Type: Spontaneous
  Country: CN (occurrence: CN)
  Receive Date: 20140212
  Receipt Date: 20140212
  Transmission Date: 20141002
  Serious: Yes (Other)
  Sender: FDA-Public Use
  Company Number: CN-PFIZER INC-2014038913

PATIENT
  Age: 41 Year
  Sex: Female

DRUGS (1)
  1. ZOLOFT [Suspect]
     Indication: DEPRESSION
     Dosage: UNK

REACTIONS (5)
  - Schizophrenia [Unknown]
  - Hallucination [Unknown]
  - Mania [Unknown]
  - Tic [Unknown]
  - Mydriasis [Unknown]
